FAERS Safety Report 19275082 (Version 1)
Quarter: 2021Q2

REPORT INFORMATION
  Report Type: Spontaneous
  Country: SI (occurrence: SI)
  Receive Date: 20210519
  Receipt Date: 20210519
  Transmission Date: 20210717
  Serious: Yes (Other)
  Sender: FDA-Public Use
  Company Number: SI-ORGANON-O2105SVN000673

PATIENT
  Sex: Male

DRUGS (43)
  1. PRENESSA [Concomitant]
     Active Substance: PERINDOPRIL
     Dosage: 8 MILLIGRAM
     Route: 065
     Dates: start: 201912
  2. LACIPIL [Concomitant]
     Active Substance: LACIDIPINE
     Dosage: 6 MG (IN THE EVENING)
     Route: 065
     Dates: start: 201606
  3. REPATHA [Concomitant]
     Active Substance: EVOLOCUMAB
     Dosage: 140 MG, Q2W (1X EVERY 14 DAYS)
     Route: 065
     Dates: start: 202006, end: 202010
  4. PLAVIX [Concomitant]
     Active Substance: CLOPIDOGREL BISULFATE
     Dosage: 75 MG (HALF A YEAR)
     Route: 065
     Dates: start: 201912
  5. ASPIRINE [Concomitant]
     Active Substance: ASPIRIN
     Indication: PRODUCT USED FOR UNKNOWN INDICATION
     Dosage: UNK
     Route: 065
  6. PRENEWEL [Concomitant]
     Active Substance: INDAPAMIDE\PERINDOPRIL ERBUMINE
     Indication: PRODUCT USED FOR UNKNOWN INDICATION
     Dosage: UNK
     Route: 065
     Dates: start: 201606
  7. PANTOPRAZOLE [Concomitant]
     Active Substance: PANTOPRAZOLE
     Dosage: 20 MG (IN THE MORNING)
     Route: 065
     Dates: start: 201606
  8. EFIENT [Concomitant]
     Active Substance: PRASUGREL HYDROCHLORIDE
     Dosage: 10 MG (ONE YEAR)
     Route: 065
     Dates: start: 201604
  9. LACIPIL [Concomitant]
     Active Substance: LACIDIPINE
     Dosage: 6 MG (IN THE EVENING)
     Route: 065
  10. CATALIP [Concomitant]
     Active Substance: FENOFIBRATE
     Dosage: 250 MG (IN THE EVENING)
     Route: 065
     Dates: start: 201912
  11. CRESTOR [Suspect]
     Active Substance: ROSUVASTATIN CALCIUM
     Indication: PRODUCT USED FOR UNKNOWN INDICATION
     Dosage: UNK (IN THE EVENING)
     Route: 065
  12. PRENESSA [Concomitant]
     Active Substance: PERINDOPRIL
     Indication: PRODUCT USED FOR UNKNOWN INDICATION
     Dosage: 8 MILLIGRAM
     Route: 065
  13. PRENESSA [Concomitant]
     Active Substance: PERINDOPRIL
     Dosage: 4 MILLIGRAM (2X1)
     Route: 065
     Dates: start: 201604
  14. LACIPIL [Concomitant]
     Active Substance: LACIDIPINE
     Dosage: 4 MG (IN THE EVENING)
     Route: 065
     Dates: start: 201604
  15. RANEXA [Concomitant]
     Active Substance: RANOLAZINE
     Indication: PRODUCT USED FOR UNKNOWN INDICATION
     Dosage: 500 MG, Q12H
     Route: 065
     Dates: start: 201606
  16. COUPET [Suspect]
     Active Substance: ROSUVASTATIN CALCIUM
     Indication: HYPERCHOLESTEROLAEMIA
     Dosage: 10 MG (IN THE EVENING)
     Route: 065
     Dates: start: 201104, end: 201106
  17. EFIENT [Concomitant]
     Active Substance: PRASUGREL HYDROCHLORIDE
     Indication: PRODUCT USED FOR UNKNOWN INDICATION
     Dosage: 10 MG (ONE YEAR)
     Route: 065
     Dates: start: 201606, end: 201704
  18. PRENESSA [Concomitant]
     Active Substance: PERINDOPRIL
     Dosage: 8 MILLIGRAM (IN THE MORNING)
     Route: 065
     Dates: start: 201912
  19. SORTIS [Concomitant]
     Active Substance: ATORVASTATIN
     Dosage: 20 MILLIGRAM (IN THE EVENNING)
     Route: 065
     Dates: start: 201606
  20. LACIPIL [Concomitant]
     Active Substance: LACIDIPINE
     Dosage: 6 MG (IN THE EVENING)
     Route: 065
     Dates: start: 201912
  21. RANEXA [Concomitant]
     Active Substance: RANOLAZINE
     Dosage: 375 MG, Q12H
     Route: 065
     Dates: start: 201606
  22. PRENESSA [Concomitant]
     Active Substance: PERINDOPRIL
     Dosage: 6 MILLIGRAM (4 MG IN THE MORNING AND 2 MG IN THE EVENING)
     Route: 065
     Dates: start: 201104
  23. SORTIS [Concomitant]
     Active Substance: ATORVASTATIN
     Indication: PRODUCT USED FOR UNKNOWN INDICATION
     Dosage: 20 MILLIGRAM (IN THE EVENNING)
     Route: 065
     Dates: start: 201604
  24. LACIPIL [Concomitant]
     Active Substance: LACIDIPINE
     Indication: PRODUCT USED FOR UNKNOWN INDICATION
     Dosage: 4 MG (IN THE EVENING)
     Route: 065
     Dates: start: 201104
  25. LACIPIL [Concomitant]
     Active Substance: LACIDIPINE
     Dosage: 4 MG (IN THE EVENING)
     Route: 065
     Dates: start: 201111
  26. PLAVIX [Concomitant]
     Active Substance: CLOPIDOGREL BISULFATE
     Dosage: 75 MG
     Route: 065
     Dates: start: 201111
  27. ATORVASTATIN [Suspect]
     Active Substance: ATORVASTATIN
     Indication: HYPERCHOLESTEROLAEMIA
     Dosage: UNK
     Route: 065
  28. PANTOPRAZOLE [Concomitant]
     Active Substance: PANTOPRAZOLE
     Indication: PRODUCT USED FOR UNKNOWN INDICATION
     Dosage: 20 MG (IN THE MORNING)
     Route: 065
     Dates: start: 201604
  29. PRENESSA [Concomitant]
     Active Substance: PERINDOPRIL
     Dosage: 8 MILLIGRAM
     Route: 065
     Dates: start: 202006
  30. PRENESSA [Concomitant]
     Active Substance: PERINDOPRIL
     Dosage: 4 MILLIGRAM (2X1)
     Route: 065
     Dates: start: 201606
  31. LACIPIL [Concomitant]
     Active Substance: LACIDIPINE
     Dosage: 2 MG (IN THE MORNING)
     Route: 065
     Dates: start: 201606
  32. PLAVIX [Concomitant]
     Active Substance: CLOPIDOGREL BISULFATE
     Indication: PRODUCT USED FOR UNKNOWN INDICATION
     Dosage: UNK (ONE YEAR)
     Route: 065
  33. ULTOP [OMEPRAZOLE] [Concomitant]
     Indication: PRODUCT USED FOR UNKNOWN INDICATION
     Dosage: UNK (IN THE MORNING)
     Route: 065
  34. CATALIP [Concomitant]
     Active Substance: FENOFIBRATE
     Dosage: UNK
     Route: 065
     Dates: start: 201606
  35. LACIPIL [Concomitant]
     Active Substance: LACIDIPINE
     Dosage: 6 MG
     Route: 065
     Dates: start: 202006
  36. REPATHA [Concomitant]
     Active Substance: EVOLOCUMAB
     Indication: PRODUCT USED FOR UNKNOWN INDICATION
     Dosage: 140 MG, Q2W (EVERY 14 DAYS)
     Route: 058
  37. PLAVIX [Concomitant]
     Active Substance: CLOPIDOGREL BISULFATE
     Dosage: 75 MG
     Route: 065
     Dates: start: 202006
  38. CATALIP [Concomitant]
     Active Substance: FENOFIBRATE
     Indication: PRODUCT USED FOR UNKNOWN INDICATION
     Dosage: 250 MG
     Route: 065
     Dates: start: 201912
  39. EZETIMIBE. [Suspect]
     Active Substance: EZETIMIBE
     Indication: HYPERCHOLESTEROLAEMIA
     Dosage: UNK
     Route: 065
  40. PRENESSA [Concomitant]
     Active Substance: PERINDOPRIL
     Dosage: 4 MILLIGRAM (IN THE MORNING)
     Route: 065
     Dates: start: 201111
  41. NOLPAZA [Concomitant]
     Active Substance: PANTOPRAZOLE SODIUM
     Indication: PRODUCT USED FOR UNKNOWN INDICATION
     Dosage: 20 MILLIGRAM (IN THE MORNING)
     Route: 065
     Dates: start: 201912
  42. LACIPIL [Concomitant]
     Active Substance: LACIDIPINE
     Dosage: 4 MG (IN THE EVENING)
     Route: 065
     Dates: start: 201606
  43. LACIPIL [Concomitant]
     Active Substance: LACIDIPINE
     Dosage: 6 MG
     Route: 065
     Dates: start: 201912

REACTIONS (3)
  - Drug intolerance [Unknown]
  - Bradycardia [Unknown]
  - Myalgia [Recovering/Resolving]
